FAERS Safety Report 6024253-1 (Version None)
Quarter: 2008Q4

REPORT INFORMATION
  Report Type: 
  Country: None (occurrence: None)
  Receive Date: 20081222
  Receipt Date: 20081030
  Transmission Date: 20090506
  Serious: No
  Sender: FDA-Public Use
  Company Number: SPV1-2008-02371

PATIENT
  Age: 8 Year
  Sex: Male
  Weight: 24.9 kg

DRUGS (7)
  1. VYVANSE [Suspect]
     Indication: ATTENTION DEFICIT/HYPERACTIVITY DISORDER
     Dosage: 20 MG, 1X/DAY:QD, ORAL
     Route: 048
     Dates: start: 20080701, end: 20080701
  2. L-LYSINE /00919901/ (LYSINE) [Concomitant]
  3. GABA /00522701/ (GAMMA-AMINOBUTYRIC ACID) [Concomitant]
  4. 5-HTP (OXITRIPTAN) [Concomitant]
  5. SEA BUDDIES CONCENTRATE [Concomitant]
  6. CLONIDINE [Concomitant]
  7. MELATONIN (MELATONIN) [Concomitant]

REACTIONS (4)
  - ANGER [None]
  - DISTURBANCE IN SOCIAL BEHAVIOUR [None]
  - EMOTIONAL DISTRESS [None]
  - IRRITABILITY [None]
